FAERS Safety Report 17430504 (Version 1)
Quarter: 2020Q1

REPORT INFORMATION
  Report Type: Not Available
  Country: US (occurrence: US)
  Receive Date: 20200218
  Receipt Date: 20200218
  Transmission Date: 20200409
  Serious: No
  Sender: FDA-Public Use
  Company Number: US-NEUROCRINE BIOSCIENCES INC.-2020NBI00429

PATIENT
  Age: 59 Year
  Sex: Female

DRUGS (27)
  1. CELEBREX [Concomitant]
     Active Substance: CELECOXIB
  2. FOLIC ACID. [Concomitant]
     Active Substance: FOLIC ACID
  3. L-LYSINE [Concomitant]
     Active Substance: LYSINE
  4. ELIQUIS [Concomitant]
     Active Substance: APIXABAN
  5. VITAMIN E [Concomitant]
     Active Substance: .ALPHA.-TOCOPHEROL
  6. OMEPRAZOLE. [Concomitant]
     Active Substance: OMEPRAZOLE
  7. INGREZZA [Suspect]
     Active Substance: VALBENAZINE
     Indication: TARDIVE DYSKINESIA
     Route: 048
     Dates: start: 20191025
  8. TYLENOL [Concomitant]
     Active Substance: ACETAMINOPHEN
  9. LITHIUM. [Concomitant]
     Active Substance: LITHIUM
  10. MULTIVITAMIN [Concomitant]
     Active Substance: VITAMINS
  11. MIRALAX [Concomitant]
     Active Substance: POLYETHYLENE GLYCOL 3350
  12. PROAIR HFA [Concomitant]
     Active Substance: ALBUTEROL SULFATE
  13. DEXEDRINE [Concomitant]
     Active Substance: DEXTROAMPHETAMINE SULFATE
  14. FENTANYL. [Concomitant]
     Active Substance: FENTANYL
  15. METHOTREXATE. [Concomitant]
     Active Substance: METHOTREXATE
  16. OMEGA 3 [Concomitant]
     Active Substance: OMEGA-3 FATTY ACIDS
  17. PHENERGAN [Concomitant]
     Active Substance: PROMETHAZINE HYDROCHLORIDE
  18. VICODIN [Concomitant]
     Active Substance: ACETAMINOPHEN\HYDROCODONE BITARTRATE
  19. BISOPROLOL [Concomitant]
     Active Substance: BISOPROLOL
  20. CRANBERRY. [Concomitant]
     Active Substance: CRANBERRY
  21. EVENING PRIMROSE [Concomitant]
  22. LEVOTHYROXINE. [Concomitant]
     Active Substance: LEVOTHYROXINE
  23. RISPERDAL [Concomitant]
     Active Substance: RISPERIDONE
  24. LAMICTAL [Concomitant]
     Active Substance: LAMOTRIGINE
  25. VITAMIN B [Concomitant]
     Active Substance: VITAMIN B
  26. DIAZEPAM. [Concomitant]
     Active Substance: DIAZEPAM
  27. PERCOCET [Concomitant]
     Active Substance: ACETAMINOPHEN\OXYCODONE HYDROCHLORIDE

REACTIONS (1)
  - Somnolence [Unknown]

NARRATIVE: CASE EVENT DATE: 20191220
